FAERS Safety Report 9639865 (Version 1)
Quarter: 2013Q4

REPORT INFORMATION
  Report Type: Spontaneous
  Country: US (occurrence: None)
  Receive Date: 20131021
  Receipt Date: 20131021
  Transmission Date: 20140711
  Serious: Yes (Life-Threatening, Hospitalization, Disabling)
  Sender: FDA-Public Use
  Company Number: None

PATIENT
  Age: 33 Year
  Sex: Female
  Weight: 48.99 kg

DRUGS (1)
  1. LARIAM [Suspect]
     Indication: MALARIA PROPHYLAXIS

REACTIONS (10)
  - Neuropsychiatric syndrome [None]
  - Insomnia [None]
  - Abnormal dreams [None]
  - Nightmare [None]
  - Hallucination, auditory [None]
  - Loss of employment [None]
  - Completed suicide [None]
  - Somnolence [None]
  - Psychotic disorder [None]
  - Middle insomnia [None]
